FAERS Safety Report 5443596-3 (Version None)
Quarter: 2007Q3

REPORT INFORMATION
  Report Type: 
  Country: None (occurrence: None)
  Receive Date: 20070730
  Receipt Date: 20070202
  Transmission Date: 20080115
  Serious: Yes (Hospitalization)
  Sender: FDA-Public Use
  Company Number: 236046

PATIENT
  Age: 58 Year
  Sex: Male
  Weight: 76.6 kg

DRUGS (11)
  1. RITUXAN [Suspect]
     Indication: CHRONIC LYMPHOCYTIC LEUKAEMIA
     Dates: start: 20041227, end: 20050415
  2. CAMPATH [Suspect]
     Indication: CHRONIC LYMPHOCYTIC LEUKAEMIA
     Dosage: SUBCUTANEOUS
     Route: 058
     Dates: start: 20050706, end: 20050805
  3. DIOVAN [Concomitant]
  4. HYTRIN [Concomitant]
  5. TRIAMTERENE (TRIAMTERENE) [Concomitant]
  6. TIAZAC [Concomitant]
  7. PROTONIX [Concomitant]
  8. TYLENOL (CAPLET) [Concomitant]
  9. BENADRYL [Concomitant]
  10. SEPTRA DS (SULMETHOXAZOLE, TRIMETHOPRIM) [Concomitant]
  11. ACYCLOVIR SODIUM [Concomitant]

REACTIONS (3)
  - DIARRHOEA [None]
  - PROGRESSIVE MULTIFOCAL LEUKOENCEPHALOPATHY [None]
  - PYREXIA [None]
